FAERS Safety Report 10072155 (Version 1)
Quarter: 2014Q2

REPORT INFORMATION
  Report Type: Spontaneous
  Country: US (occurrence: None)
  Receive Date: 20140410
  Receipt Date: 20140410
  Transmission Date: 20141212
  Serious: Yes (Other)
  Sender: FDA-Public Use
  Company Number: None

PATIENT
  Age: 54 Year
  Sex: Female

DRUGS (2)
  1. PROPOFOL [Suspect]
     Indication: COLONOSCOPY
  2. PROPOFOL [Suspect]
     Indication: SEDATION

REACTIONS (2)
  - Pyrexia [None]
  - Chills [None]
